FAERS Safety Report 16056766 (Version 2)
Quarter: 2019Q1

REPORT INFORMATION
  Report Type: Spontaneous
  Country: DK (occurrence: DK)
  Receive Date: 20190311
  Receipt Date: 20190325
  Transmission Date: 20190418
  Serious: Yes (Hospitalization)
  Sender: FDA-Public Use
  Company Number: DK-PFIZER INC-2019099533

PATIENT
  Age: 67 Year
  Sex: Female

DRUGS (8)
  1. FASLODEX [Suspect]
     Active Substance: FULVESTRANT
     Indication: BREAST CANCER
     Dosage: 500 MG, EVERY 4 WEEKS
     Route: 030
     Dates: start: 201705, end: 20180629
  2. FULVESTRANT SANDOZ [Suspect]
     Active Substance: FULVESTRANT
     Indication: BREAST CANCER
     Dosage: 500 MG, EVERY 4 WEEKS
     Route: 030
     Dates: start: 20180727, end: 20190211
  3. PARACETAMOL [Concomitant]
     Active Substance: ACETAMINOPHEN
     Indication: PAIN
     Dosage: 1000 MG, (2 TABLETTER AS NEEDED, MAX 4 TIMES DAILY)
     Route: 048
     Dates: start: 20180629
  4. CALCIUM D [CALCIUM;COLECALCIFEROL] [Concomitant]
     Indication: MINERAL SUPPLEMENTATION
     Dosage: 2 DF, 1X/DAY
     Route: 048
     Dates: start: 20170426
  5. IBRANCE [Suspect]
     Active Substance: PALBOCICLIB
     Indication: BREAST CANCER
     Dosage: 125 MG, CYCLIC (1 TIME DAILY IN 3 WEEKS, 1 WEEK PAUSE)
     Route: 048
     Dates: start: 201705, end: 20190211
  6. PIVMECILLINAM [Concomitant]
     Active Substance: AMDINOCILLIN PIVOXIL
     Indication: CYSTITIS
     Dosage: 1200 MG, 1X/DAY
     Route: 048
     Dates: start: 20190122
  7. TRAMADOL. [Concomitant]
     Active Substance: TRAMADOL
     Indication: PAIN
     Dosage: DOSE: 1 TABLET AS NEEDED, MAX 3 TIMES DAILY
     Route: 048
     Dates: start: 20190122
  8. IBUPROFEN. [Concomitant]
     Active Substance: IBUPROFEN
     Indication: PAIN
     Dosage: 1200 MG, 1X/DAY
     Route: 048
     Dates: start: 20190122

REACTIONS (12)
  - Skin discolouration [Unknown]
  - Coordination abnormal [Unknown]
  - Blood creatinine increased [Recovered/Resolved]
  - Muscular weakness [Unknown]
  - Pain in extremity [Not Recovered/Not Resolved]
  - Peripheral artery thrombosis [Recovering/Resolving]
  - Aspartate aminotransferase increased [Recovering/Resolving]
  - Gait disturbance [Unknown]
  - Mesenteric artery thrombosis [Recovering/Resolving]
  - Blood lactate dehydrogenase increased [Recovering/Resolving]
  - Glomerular filtration rate decreased [Recovered/Resolved]
  - Aortic thrombosis [Recovering/Resolving]

NARRATIVE: CASE EVENT DATE: 201901
